FAERS Safety Report 19371738 (Version 2)
Quarter: 2021Q3

REPORT INFORMATION
  Report Type: Spontaneous
  Country: US (occurrence: US)
  Receive Date: 20210603
  Receipt Date: 20210806
  Transmission Date: 20211014
  Serious: No
  Sender: FDA-Public Use
  Company Number: US-SA-2021SA182965

PATIENT
  Age: 60 Year
  Sex: Female

DRUGS (2)
  1. DUPIXENT [Suspect]
     Active Substance: DUPILUMAB
     Dosage: 300 MG, QOW
     Route: 058
     Dates: start: 202105
  2. DUPIXENT [Suspect]
     Active Substance: DUPILUMAB
     Indication: DERMATITIS ATOPIC
     Dosage: 600 MG, 1X (REQ UENCY: 2 PENS, 600MG DAY 1)
     Route: 058
     Dates: start: 20210518, end: 20210518

REACTIONS (7)
  - Dry eye [Unknown]
  - Visual impairment [Unknown]
  - Aphthous ulcer [Unknown]
  - Muscle spasms [Unknown]
  - Diarrhoea [Unknown]
  - Suspected COVID-19 [Unknown]
  - Nausea [Unknown]

NARRATIVE: CASE EVENT DATE: 202105
